FAERS Safety Report 13211070 (Version 1)
Quarter: 2017Q1

REPORT INFORMATION
  Report Type: Spontaneous
  Country: ES (occurrence: ES)
  Receive Date: 20170210
  Receipt Date: 20170210
  Transmission Date: 20170428
  Serious: Yes (Hospitalization)
  Sender: FDA-Public Use
  Company Number: ES-INCYTE CORPORATION-2016IN008456

PATIENT
  Sex: Male

DRUGS (1)
  1. JAKAVI [Suspect]
     Active Substance: RUXOLITINIB
     Indication: PRODUCT USED FOR UNKNOWN INDICATION
     Dosage: 10-15 MG, UNK
     Route: 065

REACTIONS (7)
  - Drug ineffective [Unknown]
  - Cytokine storm [Recovered/Resolved]
  - Blood phosphorus abnormal [Unknown]
  - Blood potassium abnormal [Unknown]
  - Cytokine abnormal [Unknown]
  - Tumour lysis syndrome [Unknown]
  - Blood calcium abnormal [Unknown]
